FAERS Safety Report 20944976 (Version 7)
Quarter: 2024Q1

REPORT INFORMATION
  Report Type: Spontaneous
  Country: US (occurrence: US)
  Receive Date: 20220610
  Receipt Date: 20240212
  Transmission Date: 20240410
  Serious: Yes (Hospitalization, Disabling, Other)
  Sender: FDA-Public Use
  Company Number: US-PFIZER INC-202101725029

PATIENT
  Age: 60 Year
  Sex: Female
  Weight: 87.09 kg

DRUGS (3)
  1. XELJANZ XR [Suspect]
     Active Substance: TOFACITINIB CITRATE
     Indication: Rheumatoid arthritis
     Dosage: 11 MG
     Dates: start: 20211122, end: 20211126
  2. XELJANZ XR [Suspect]
     Active Substance: TOFACITINIB CITRATE
     Dosage: 11 MG
     Dates: end: 202203
  3. XELJANZ XR [Suspect]
     Active Substance: TOFACITINIB CITRATE
     Dosage: 11 MG, 1X/DAY
     Route: 048
     Dates: start: 202311, end: 20240118

REACTIONS (10)
  - Knee operation [Unknown]
  - Knee arthroplasty [Unknown]
  - Intervertebral disc protrusion [Unknown]
  - Nerve compression [Unknown]
  - Loss of consciousness [Unknown]
  - Product dose omission issue [Unknown]
  - Illness [Unknown]
  - Accidental exposure to product [Unknown]
  - Depressed mood [Unknown]
  - Confusional state [Unknown]

NARRATIVE: CASE EVENT DATE: 20211127
